FAERS Safety Report 19994818 (Version 1)
Quarter: 2021Q4

REPORT INFORMATION
  Report Type: Spontaneous
  Country: FR (occurrence: FR)
  Receive Date: 20211026
  Receipt Date: 20211026
  Transmission Date: 20220303
  Serious: Yes (Death)
  Sender: FDA-Public Use
  Company Number: None

PATIENT
  Age: 68 Year
  Sex: Male

DRUGS (13)
  1. ETOPOSIDE [Suspect]
     Active Substance: ETOPOSIDE
     Indication: Bone marrow conditioning regimen
     Dosage: 183 MILLIGRAM, QD
     Route: 042
     Dates: start: 20210628, end: 20210630
  2. CLOFARABINE [Suspect]
     Active Substance: CLOFARABINE
     Indication: Bone marrow conditioning regimen
     Dosage: 40 MILLIGRAM/SQ. METER (40MG/M2)
     Route: 042
     Dates: start: 20210628, end: 20210630
  3. CYCLOPHOSPHAMIDE [Suspect]
     Active Substance: CYCLOPHOSPHAMIDE
     Indication: Bone marrow conditioning regimen
     Dosage: 460 MILLIGRAM, QD
     Route: 042
     Dates: start: 20210628, end: 20210630
  4. CANCIDAS [Suspect]
     Active Substance: CASPOFUNGIN ACETATE
     Indication: Aspergillus infection
     Dosage: 70 MILLIGRAM, QD
     Route: 042
     Dates: start: 20210611, end: 20210703
  5. LINEZOLID [Suspect]
     Active Substance: LINEZOLID
     Indication: Infection prophylaxis
     Dosage: 1200 MILLIGRAM, QD (600 MGX2/JOUR)
     Dates: start: 20210609, end: 20210629
  6. CELLCEPT [Suspect]
     Active Substance: MYCOPHENOLATE MOFETIL\MYCOPHENOLATE MOFETIL HYDROCHLORIDE
     Indication: Prophylaxis against transplant rejection
     Dosage: 2 GRAM, QD
     Route: 048
     Dates: start: 20210522, end: 20210702
  7. CILASTATIN SODIUM\IMIPENEM [Suspect]
     Active Substance: CILASTATIN SODIUM\IMIPENEM
     Indication: Infection prophylaxis
     Dosage: 3 DOSAGE FORM, QD
     Route: 042
     Dates: start: 20210609, end: 20210703
  8. CYCLOSPORINE [Suspect]
     Active Substance: CYCLOSPORINE
     Indication: Prophylaxis against transplant rejection
     Dosage: 200 MILLIGRAM, QD
     Dates: start: 20210522, end: 20210702
  9. MESNA [Concomitant]
     Active Substance: MESNA
     Indication: Drug toxicity prophylaxis
     Dosage: 275 MILLIGRAM, CYCLE
     Route: 042
     Dates: start: 20210628, end: 20210630
  10. GABAPENTIN [Concomitant]
     Active Substance: GABAPENTIN
     Indication: Pain
     Dosage: 300 MILLIGRAM, QD (100 MGX3/JOUR)
     Route: 048
     Dates: start: 20210612, end: 20210701
  11. ONDANSETRON [Concomitant]
     Active Substance: ONDANSETRON
     Indication: Prophylaxis of nausea and vomiting
     Dosage: 8 MILLIGRAM, QD
     Route: 048
     Dates: start: 20210628, end: 20210630
  12. ACIDE URSODESOXYCHOLIQUE MYLAN [Concomitant]
     Indication: Cholangitis
     Dosage: 250 MILLIGRAM, QD
     Route: 048
     Dates: start: 20210612, end: 20210701
  13. TRAMADOL [Concomitant]
     Active Substance: TRAMADOL
     Indication: Pain
     Dosage: 1 DOSAGE FORM, QD
     Route: 048
     Dates: start: 20210612, end: 20210701

REACTIONS (1)
  - Acute kidney injury [Fatal]

NARRATIVE: CASE EVENT DATE: 20210702
